FAERS Safety Report 16023361 (Version 1)
Quarter: 2019Q1

REPORT INFORMATION
  Report Type: Spontaneous
  Country: JP (occurrence: JP)
  Receive Date: 20190301
  Receipt Date: 20190301
  Transmission Date: 20190418
  Serious: Yes (Death, Life-Threatening)
  Sender: FDA-Public Use
  Company Number: JP-CELGENEUS-JPN-20190204329

PATIENT
  Age: 78 Year
  Sex: Female
  Weight: 48.7 kg

DRUGS (23)
  1. AZACITIDINE. [Suspect]
     Active Substance: AZACITIDINE
     Indication: ACUTE MYELOID LEUKAEMIA
     Dosage: 100 MILLIGRAM
     Route: 058
     Dates: start: 20190130, end: 20190131
  2. VORICONAZOLE. [Concomitant]
     Active Substance: VORICONAZOLE
     Indication: BRONCHOPULMONARY ASPERGILLOSIS
     Dosage: 400 MILLIGRAM
     Route: 065
     Dates: end: 20190204
  3. CARBAZOCHROME [Concomitant]
     Active Substance: CARBAZOCHROME
     Indication: LUNG INFILTRATION
     Dosage: 100 MILLIGRAM
     Route: 065
     Dates: start: 20190205, end: 20190205
  4. TRANEXAMIC ACID. [Concomitant]
     Active Substance: TRANEXAMIC ACID
     Indication: HAEMOSTASIS
     Dosage: 1000 MILLIGRAM
     Route: 065
     Dates: start: 20190205, end: 20190205
  5. MINERIC 5 [Concomitant]
     Indication: ELECTROLYTE SUBSTITUTION THERAPY
     Dosage: 2 MILLILITER
     Route: 065
     Dates: start: 20190206, end: 20190215
  6. FEBUXOSTAT. [Concomitant]
     Active Substance: FEBUXOSTAT
     Indication: HYPERURICAEMIA
     Route: 065
     Dates: start: 20181225, end: 20190206
  7. FUROSEMIDE. [Concomitant]
     Active Substance: FUROSEMIDE
     Indication: POLYURIA
     Dosage: 20 MILLIGRAM
     Route: 065
     Dates: start: 20190205, end: 20190205
  8. LUBIPROSTONE [Concomitant]
     Active Substance: LUBIPROSTONE
     Indication: CONSTIPATION
     Dosage: 24 MICROGRAM
     Route: 065
     Dates: start: 20190204, end: 20190206
  9. ALENDRONATE SODIUM HYDRATE [Concomitant]
     Active Substance: ALENDRONATE SODIUM
     Indication: OSTEOPOROSIS
     Route: 065
     Dates: start: 20181223, end: 20190203
  10. FAMOTIDINE. [Concomitant]
     Active Substance: FAMOTIDINE
     Indication: PROPHYLAXIS AGAINST GASTROINTESTINAL ULCER
     Dosage: 20 MILLIGRAM
     Route: 065
     Dates: start: 20190108, end: 20190206
  11. ACETAMINOPHEN. [Concomitant]
     Active Substance: ACETAMINOPHEN
     Indication: ANTIPYRESIS
     Dosage: 200 MILLIGRAM
     Route: 065
     Dates: start: 20190201, end: 20190206
  12. BFLUID [Concomitant]
     Active Substance: AMINO ACIDS\DEXTROSE\ELECTROLYTES NOS\VITAMINS
     Indication: ELECTROLYTE SUBSTITUTION THERAPY
     Dosage: 4500 MILLILITER
     Route: 065
     Dates: start: 20190206, end: 20190219
  13. SODIUM BICARBONATE. [Concomitant]
     Active Substance: SODIUM BICARBONATE
     Indication: ACIDOSIS
     Dosage: 60 MILLILITER
     Route: 065
     Dates: start: 20190130, end: 20190204
  14. FENTANYL CITRATE. [Concomitant]
     Active Substance: FENTANYL CITRATE
     Indication: LIGHT ANAESTHESIA
     Dosage: 1000 MILLIGRAM
     Route: 065
     Dates: start: 20190205, end: 20190205
  15. PN TWIN [Concomitant]
     Indication: ELECTROLYTE SUBSTITUTION THERAPY
     Dosage: 1000 MILLILITER
     Route: 065
     Dates: start: 20190206, end: 20190215
  16. VITAJECT [Concomitant]
     Active Substance: CYANOCOBALAMIN\PYRIDOXAMINE HYDROCHLORIDE\THIAMINE HYDROCHLORIDE
     Indication: VITAMIN SUPPLEMENTATION
     Dosage: 10 MILLILITER
     Route: 065
     Dates: start: 20190206, end: 20190215
  17. MAGNESIUM OXIDE. [Concomitant]
     Active Substance: MAGNESIUM OXIDE
     Indication: CONSTIPATION
     Dosage: 750 MILLIGRAM
     Route: 065
     Dates: start: 20190131, end: 20190206
  18. ACETAMINOPHEN. [Concomitant]
     Active Substance: ACETAMINOPHEN
     Dosage: 750 MILLIGRAM
     Route: 065
     Dates: start: 20190206, end: 20190210
  19. MIDAZOLAM [Concomitant]
     Active Substance: MIDAZOLAM HYDROCHLORIDE
     Indication: LIGHT ANAESTHESIA
     Dosage: 10 MILLIGRAM
     Route: 065
     Dates: start: 20190205, end: 20190205
  20. OMEPRAZOLE. [Concomitant]
     Active Substance: OMEPRAZOLE
     Indication: STRESS ULCER
     Dosage: 20 MILLIGRAM
     Route: 065
     Dates: start: 20190206, end: 20190220
  21. AMINOLEBAN [Concomitant]
     Active Substance: AMINO ACIDS
     Indication: SUPPLEMENTATION THERAPY
     Dosage: 2000 MILLILITER
     Route: 065
     Dates: start: 20190206, end: 20190215
  22. CEFEPIME DIHYDROCHLORIDE [Concomitant]
     Active Substance: CEFEPIME HYDROCHLORIDE
     Indication: PNEUMONIA BACTERIAL
     Dosage: 2000 MILLIGRAM
     Route: 065
     Dates: start: 20190203, end: 20190204
  23. POTASSIUM CHLORIDE. [Concomitant]
     Active Substance: POTASSIUM CHLORIDE
     Indication: ELECTROLYTE SUBSTITUTION THERAPY
     Dosage: 2982 MILLIGRAM
     Route: 065
     Dates: start: 20190206, end: 20190215

REACTIONS (1)
  - Lung infiltration [Fatal]

NARRATIVE: CASE EVENT DATE: 20190204
